FAERS Safety Report 8543221 (Version 4)
Quarter: 2013Q3

REPORT INFORMATION
  Report Type: Report from Study
  Country: US (occurrence: US)
  Receive Date: 20120502
  Receipt Date: 20130927
  Transmission Date: 20140515
  Serious: Yes (Hospitalization)
  Sender: FDA-Public Use
  Company Number: US-ELI_LILLY_AND_COMPANY-US201202006503

PATIENT
  Age: 80 Year
  Sex: Female

DRUGS (4)
  1. TERIPARATIDE [Suspect]
     Indication: OSTEOPOROSIS
     Dosage: 20 UG, QD
     Dates: start: 20120207
  2. TERIPARATIDE [Suspect]
     Dosage: 20 UG, QD
     Dates: end: 201301
  3. TERIPARATIDE [Suspect]
     Dosage: 20 UG, QD
  4. PLAVIX [Concomitant]

REACTIONS (10)
  - Hip fracture [Unknown]
  - Basal cell carcinoma [Unknown]
  - Swelling face [Unknown]
  - Weight increased [Unknown]
  - Mobility decreased [Unknown]
  - Injection site erythema [Unknown]
  - Injection site bruising [Unknown]
  - Injection site pain [Unknown]
  - Diarrhoea [Unknown]
  - Fall [Unknown]
